FAERS Safety Report 7117436-0 (Version None)
Quarter: 2010Q4

REPORT INFORMATION
  Report Type: 
  Country: None (occurrence: None)
  Receive Date: 20101122
  Receipt Date: 20101111
  Transmission Date: 20110411
  Serious: Yes (Hospitalization, Other)
  Sender: FDA-Public Use
  Company Number: JP-EISAI INC.-E2020-08009-SPO-JP

PATIENT
  Sex: Female
  Weight: 53.4 kg

DRUGS (6)
  1. ARICEPT [Suspect]
     Indication: DEMENTIA ALZHEIMER'S TYPE
     Route: 048
     Dates: start: 20081201, end: 20090601
  2. PREMARIN [Suspect]
     Route: 048
     Dates: start: 19750101
  3. PRIMODIAN-DEPOT [Suspect]
     Route: 030
     Dates: start: 19630101
  4. PRIMODIAN-DEPOT [Suspect]
     Route: 030
  5. BUP-4 [Concomitant]
     Dates: start: 19880101
  6. WARFARIN [Concomitant]
     Indication: ARTERIOSCLEROSIS OBLITERANS
     Route: 048
     Dates: start: 19880101

REACTIONS (6)
  - ALOPECIA [None]
  - ARTERIOSCLEROSIS OBLITERANS [None]
  - CHOREA [None]
  - HYPOPHAGIA [None]
  - IMPAIRED SELF-CARE [None]
  - OBESITY [None]
